FAERS Safety Report 9184101 (Version 1)
Quarter: 2013Q1

REPORT INFORMATION
  Report Type: Spontaneous
  Country: US (occurrence: US)
  Receive Date: 20130322
  Receipt Date: 20130322
  Transmission Date: 20140127
  Serious: Yes (Hospitalization, Other)
  Sender: FDA-Public Use
  Company Number: US-BRISTOL-MYERS SQUIBB COMPANY-16422321

PATIENT
  Age: 64 Year
  Sex: Male

DRUGS (1)
  1. ERBITUX [Suspect]
     Indication: HEAD AND NECK CANCER
     Dosage: NO OF INF: 5,INTERRUPTED?THEN 250MG/M2 ON 06FEB12,13FEB,20FEB2012.
     Route: 042
     Dates: start: 20120130

REACTIONS (6)
  - Failure to thrive [Unknown]
  - Pain [Unknown]
  - Radiation skin injury [Unknown]
  - Stomatitis [Unknown]
  - Weight decreased [Unknown]
  - Dysphagia [Unknown]
